FAERS Safety Report 8378180-5 (Version None)
Quarter: 2012Q2

REPORT INFORMATION
  Report Type: 
  Country: None (occurrence: None)
  Receive Date: 20120522
  Receipt Date: 20120515
  Transmission Date: 20120825
  Serious: No
  Sender: FDA-Public Use
  Company Number: US-PFIZER INC-2012119028

PATIENT
  Sex: Female

DRUGS (2)
  1. INLYTA [Suspect]
     Indication: RENAL CANCER
     Dosage: 5 MG, ONE TABLET, 2X/DAY
     Dates: start: 20120507
  2. INLYTA [Suspect]
     Dosage: 1 MG, 2X/DAY

REACTIONS (1)
  - HYPERTENSION [None]
